FAERS Safety Report 8474874-1 (Version None)
Quarter: 2012Q2

REPORT INFORMATION
  Report Type: 
  Country: None (occurrence: None)
  Receive Date: 20120628
  Receipt Date: 20120621
  Transmission Date: 20120825
  Serious: Yes (Hospitalization, Other)
  Sender: FDA-Public Use
  Company Number: ES-PFIZER INC-2012150505

PATIENT
  Age: 78 Year
  Sex: Female

DRUGS (3)
  1. ATRISCAL [Suspect]
     Indication: PAIN IN EXTREMITY
     Dosage: 1200 MG, 1X/DAY
     Route: 048
     Dates: start: 20101107, end: 20101126
  2. TRAMADOL HYDROCHLORIDE [Suspect]
     Indication: PAIN IN EXTREMITY
     Dosage: 975/112.5 MG, 1X/DAY
     Route: 048
     Dates: start: 20101107, end: 20101126
  3. LYRICA [Suspect]
     Indication: PAIN IN EXTREMITY
     Dosage: 150 MG, 1X/DAY
     Route: 048
     Dates: start: 20101107, end: 20101126

REACTIONS (2)
  - SOMNOLENCE [None]
  - DEPRESSED LEVEL OF CONSCIOUSNESS [None]
